FAERS Safety Report 6036540-1 (Version None)
Quarter: 2009Q1

REPORT INFORMATION
  Report Type: 
  Country: None (occurrence: None)
  Receive Date: 20090114
  Receipt Date: 20090109
  Transmission Date: 20090719
  Serious: Yes (Other)
  Sender: FDA-Public Use
  Company Number: US-JNJFOC-20090102330

PATIENT
  Age: 64 Year
  Sex: Male
  Weight: 68.04 kg

DRUGS (3)
  1. LEVAQUIN [Suspect]
     Route: 048
  2. LEVAQUIN [Suspect]
     Indication: SINUSITIS
     Route: 048
  3. NASONEX [Concomitant]
     Indication: SINUS DISORDER
     Route: 065

REACTIONS (4)
  - ABNORMAL DREAMS [None]
  - DELIRIUM [None]
  - INSOMNIA [None]
  - LETHARGY [None]
